FAERS Safety Report 8572380-7 (Version None)
Quarter: 2012Q3

REPORT INFORMATION
  Report Type: 
  Country: None (occurrence: None)
  Receive Date: 20120806
  Receipt Date: 20120803
  Transmission Date: 20120928
  Serious: Yes (Other)
  Sender: FDA-Public Use
  Company Number: US-JNJFOC-20120714093

PATIENT
  Age: 74 Year
  Sex: Female

DRUGS (2)
  1. NICOTINE POLACRILEX [Suspect]
     Route: 048
  2. NICOTINE POLACRILEX [Suspect]
     Indication: SMOKING CESSATION THERAPY
     Route: 048

REACTIONS (3)
  - DRUG ADMINISTRATION ERROR [None]
  - NICOTINE DEPENDENCE [None]
  - INTENTIONAL DRUG MISUSE [None]
